FAERS Safety Report 19177767 (Version 8)
Quarter: 2021Q3

REPORT INFORMATION
  Report Type: Report from Study
  Country: None (occurrence: DE)
  Receive Date: 20210426
  Receipt Date: 20210712
  Transmission Date: 20211014
  Serious: Yes (Hospitalization)
  Sender: FDA-Public Use
  Company Number: DE-ABBVIE-21K-062-3872445-00

PATIENT
  Age: 64 Year
  Sex: Male

DRUGS (5)
  1. DUODOPA [Suspect]
     Active Substance: CARBIDOPA\LEVODOPA
     Indication: PARKINSON^S DISEASE
     Dosage: MD 11.4ML, CRD 7.5ML/H, ED 3.1ML
     Route: 050
     Dates: start: 201301, end: 202105
  2. DUODOPA [Suspect]
     Active Substance: CARBIDOPA\LEVODOPA
     Dosage: MD 11.4ML; CRD 5.8 ML/H; ED 3.0 ML
     Route: 050
     Dates: start: 2021
  3. MIRTAZAPIN [Concomitant]
     Active Substance: MIRTAZAPINE
     Indication: PRODUCT USED FOR UNKNOWN INDICATION
  4. RIVASTIGMIN [Concomitant]
     Active Substance: RIVASTIGMINE
     Indication: PRODUCT USED FOR UNKNOWN INDICATION
  5. DUODOPA [Suspect]
     Active Substance: CARBIDOPA\LEVODOPA
     Dosage: MD 11.4 ML, CRD 6.8, ML/H ED 3.1 ML
     Route: 050
     Dates: start: 202105, end: 2021

REACTIONS (4)
  - Confusional state [Not Recovered/Not Resolved]
  - Fall [Recovered/Resolved]
  - Hyperkinesia [Not Recovered/Not Resolved]
  - Abdominal wall abscess [Recovered/Resolved]

NARRATIVE: CASE EVENT DATE: 202105
